FAERS Safety Report 10311872 (Version 1)
Quarter: 2014Q3

REPORT INFORMATION
  Report Type: Spontaneous
  Country: US (occurrence: US)
  Receive Date: 20140717
  Receipt Date: 20140717
  Transmission Date: 20150326
  Serious: Yes (Hospitalization)
  Sender: FDA-Public Use
  Company Number: US-INCYTE CORPORATION-2014IN001950

PATIENT
  Sex: Male
  Weight: 72.56 kg

DRUGS (2)
  1. JAKAFI [Suspect]
     Active Substance: RUXOLITINIB
     Indication: MYELOFIBROSIS
     Dosage: 10 MG, BID
     Route: 048
     Dates: start: 20130916
  2. JAKAFI [Suspect]
     Active Substance: RUXOLITINIB
     Indication: ANAEMIA

REACTIONS (1)
  - Leukaemia [Not Recovered/Not Resolved]
